FAERS Safety Report 12386956 (Version 1)
Quarter: 2016Q2

REPORT INFORMATION
  Report Type: Other
  Country: GB (occurrence: GB)
  Receive Date: 20160519
  Receipt Date: 20160519
  Transmission Date: 20160815
  Serious: Yes (Other)
  Sender: FDA-Public Use
  Company Number: GB-MYLANLABS-2016M1019742

PATIENT

DRUGS (11)
  1. BACLOFEN. [Concomitant]
     Active Substance: BACLOFEN
     Dosage: 1 DF, QID
     Dates: start: 20150613
  2. LOSARTAN. [Concomitant]
     Active Substance: LOSARTAN
     Dosage: 1 DF, QD
     Dates: start: 20150613
  3. NITROFURANTOIN. [Concomitant]
     Active Substance: NITROFURANTOIN
     Dosage: 1 DF, BID
     Dates: start: 20160316, end: 20160323
  4. INDAPAMIDE. [Suspect]
     Active Substance: INDAPAMIDE
     Dosage: UNK
     Dates: start: 20160205
  5. CLOMIPRAMINE [Concomitant]
     Active Substance: CLOMIPRAMINE
     Dosage: 2 DF, QD (AT NIGHT)
     Dates: start: 20160115
  6. GABAPENTIN. [Concomitant]
     Active Substance: GABAPENTIN
     Dosage: 2 DF, TID
     Dates: start: 20150613
  7. COCODAMOL [Concomitant]
     Active Substance: ACETAMINOPHEN\CODEINE PHOSPHATE
     Dosage: UNK (TAKE 1 OR 2 4 TIMES A DAY) (AS NECESSARY)
     Dates: start: 20150807
  8. DOXAZOSIN [Concomitant]
     Active Substance: DOXAZOSIN\DOXAZOSIN MESYLATE
     Dosage: 2 DF, BID
     Dates: start: 20150730
  9. TOLTERODINE TARTRATE. [Concomitant]
     Active Substance: TOLTERODINE TARTRATE
     Dosage: 1 DF, BID
     Dates: start: 20151218
  10. BISOPROLOL [Concomitant]
     Active Substance: BISOPROLOL
     Dosage: 1 DF, QD
     Dates: start: 20151013
  11. NACREZ [Concomitant]
     Dosage: 2 DF, QD
     Dates: start: 20150613

REACTIONS (1)
  - Renal impairment [Recovered/Resolved]

NARRATIVE: CASE EVENT DATE: 20160324
